FAERS Safety Report 6171578-5 (Version None)
Quarter: 2009Q2

REPORT INFORMATION
  Report Type: 
  Country: None (occurrence: None)
  Receive Date: 20090429
  Receipt Date: 20090406
  Transmission Date: 20091009
  Serious: No
  Sender: FDA-Public Use
  Company Number: US-BAYER-200918286NA

PATIENT
  Age: 11 Year
  Sex: Male
  Weight: 46 kg

DRUGS (1)
  1. MAGNEVIST [Suspect]
     Indication: NUCLEAR MAGNETIC RESONANCE IMAGING
     Dosage: TOTAL DAILY DOSE: 9 ML
     Route: 042
     Dates: start: 20090406, end: 20090406

REACTIONS (2)
  - NAUSEA [None]
  - VOMITING [None]
